FAERS Safety Report 6565122-8 (Version None)
Quarter: 2010Q1

REPORT INFORMATION
  Report Type: 
  Country: None (occurrence: None)
  Receive Date: 20100201
  Receipt Date: 20100121
  Transmission Date: 20100710
  Serious: Yes (Congenital Anomaly)
  Sender: FDA-Public Use
  Company Number: A0841964A

PATIENT
  Sex: Female
  Weight: 3.1 kg

DRUGS (6)
  1. RETROVIR [Suspect]
     Indication: ANTIRETROVIRAL THERAPY
     Dosage: 2MGKH PER DAY
     Dates: start: 20090806, end: 20090807
  2. KALETRA [Suspect]
     Indication: ANTIRETROVIRAL THERAPY
     Dosage: 4TAB PER DAY
     Dates: start: 20090217, end: 20090312
  3. TRUVADA [Suspect]
     Indication: ANTIRETROVIRAL THERAPY
     Dosage: 1TAB PER DAY
     Dates: start: 20090217
  4. REYATAZ [Suspect]
     Indication: ANTIRETROVIRAL THERAPY
     Dosage: 300MGD PER DAY
     Dates: start: 20090312, end: 20090508
  5. NORVIR [Suspect]
     Indication: ANTIRETROVIRAL THERAPY
     Dosage: 100MGD PER DAY
     Dates: start: 20090312
  6. REYATAZ [Suspect]
     Indication: PROPHYLAXIS
     Dosage: 400MGD PER DAY
     Dates: start: 20090508

REACTIONS (3)
  - ACROCHORDON [None]
  - DRUG EXPOSURE DURING PREGNANCY [None]
  - MATERNAL DRUGS AFFECTING FOETUS [None]
